FAERS Safety Report 9313379 (Version 2)
Quarter: 2013Q2

REPORT INFORMATION
  Report Type: Spontaneous
  Country: GR (occurrence: GR)
  Receive Date: 20130528
  Receipt Date: 20130531
  Transmission Date: 20140414
  Serious: Yes (Life-Threatening, Hospitalization)
  Sender: FDA-Public Use
  Company Number: PHHY2013GR052853

PATIENT
  Sex: 0

DRUGS (3)
  1. NORFLOXACIN [Suspect]
     Indication: URINARY TRACT INFECTION
  2. CIPROFLOXACIN [Suspect]
  3. CEFUROXIME [Concomitant]

REACTIONS (20)
  - Urosepsis [Recovered/Resolved]
  - Septic shock [Recovered/Resolved]
  - Multi-organ failure [Recovered/Resolved]
  - Renal necrosis [Recovered/Resolved]
  - Acute respiratory distress syndrome [Recovered/Resolved]
  - Haemodynamic instability [Recovered/Resolved]
  - Perinephric abscess [Recovered/Resolved]
  - Pyuria [Recovered/Resolved]
  - Lung infiltration [Recovered/Resolved]
  - Renal abscess [Recovered/Resolved]
  - Pyrexia [Recovered/Resolved]
  - Pyelonephritis acute [Recovered/Resolved]
  - Acute respiratory failure [Recovered/Resolved]
  - Dysuria [Recovered/Resolved]
  - Pain [Recovered/Resolved]
  - Escherichia test positive [Recovered/Resolved]
  - Hypoxia [Recovered/Resolved]
  - Cystitis escherichia [Recovered/Resolved]
  - Back pain [Recovered/Resolved]
  - Pathogen resistance [Recovered/Resolved]
